FAERS Safety Report 14581615 (Version 4)
Quarter: 2018Q4

REPORT INFORMATION
  Report Type: Spontaneous
  Country: US (occurrence: US)
  Receive Date: 20180228
  Receipt Date: 20181228
  Transmission Date: 20190204
  Serious: Yes (Hospitalization)
  Sender: FDA-Public Use
  Company Number: US-CELGENEUS-USA-20180207631

PATIENT
  Sex: Male

DRUGS (3)
  1. REVLIMID [Suspect]
     Active Substance: LENALIDOMIDE
     Indication: PLASMA CELL MYELOMA
     Dosage: 25 MILLIGRAM
     Route: 048
     Dates: start: 20170616
  2. REVLIMID [Suspect]
     Active Substance: LENALIDOMIDE
     Indication: MONOCLONAL GAMMOPATHY
  3. REVLIMID [Suspect]
     Active Substance: LENALIDOMIDE
     Indication: OFF LABEL USE

REACTIONS (3)
  - Peripheral vascular disorder [Unknown]
  - Musculoskeletal disorder [Not Recovered/Not Resolved]
  - Musculoskeletal disorder [Unknown]
